FAERS Safety Report 10532969 (Version 6)
Quarter: 2014Q4

REPORT INFORMATION
  Report Type: Spontaneous
  Country: US (occurrence: US)
  Receive Date: 20141022
  Receipt Date: 20141222
  Transmission Date: 20150529
  Serious: Yes (Hospitalization, Other)
  Sender: FDA-Public Use
  Company Number: US-UNITED THERAPEUTICS-UNT-2014-009497

PATIENT
  Age: 68 Year
  Sex: Male
  Weight: 112.34 kg

DRUGS (4)
  1. REMODULIN [Suspect]
     Active Substance: TREPROSTINIL
     Indication: PULMONARY ARTERIAL HYPERTENSION
     Dosage: 0.052 ?G/KG, CONTINUING
     Route: 058
     Dates: start: 20140825
  2. REMODULIN [Suspect]
     Active Substance: TREPROSTINIL
     Dosage: 0.023 ?G/KG, CONTINUING
     Route: 058
     Dates: start: 20140825
  3. REMODULIN [Suspect]
     Active Substance: TREPROSTINIL
     Dosage: 0.067 ?G/KG, CONTINUING
     Route: 058
     Dates: start: 20140825
  4. ASPIRIN. [Concomitant]
     Active Substance: ASPIRIN
     Indication: PRODUCT USED FOR UNKNOWN INDICATION

REACTIONS (7)
  - Weight increased [Not Recovered/Not Resolved]
  - Dyspnoea [Not Recovered/Not Resolved]
  - Fluid overload [Not Recovered/Not Resolved]
  - Oedema peripheral [Unknown]
  - Neuropathy peripheral [Recovering/Resolving]
  - Fluid retention [Unknown]
  - Catheterisation cardiac [Not Recovered/Not Resolved]

NARRATIVE: CASE EVENT DATE: 20141015
